FAERS Safety Report 23309945 (Version 2)
Quarter: 2025Q4

REPORT INFORMATION
  Report Type: Spontaneous
  Country: US (occurrence: US)
  Receive Date: 20231218
  Receipt Date: 20251009
  Transmission Date: 20260118
  Serious: Yes (Death, Hospitalization, Disabling, Other)
  Sender: CHATTEM
  Company Number: US-OPELLA-2023OHG019620

PATIENT
  Sex: Male

DRUGS (3)
  1. GOLD BOND ORIGINAL STRENGTH [Suspect]
     Active Substance: MENTHOL
     Indication: Product used for unknown indication
     Route: 065
  2. metformin (GLUCOPHAGE) 1000 mg tablet [Concomitant]
     Indication: Type 2 diabetes mellitus
     Dosage: TAKE 1000 MG BY MOUTH 2 TIMES DAILY
     Route: 048
  3. Trulicity 0.75 mg/0.5 mL pen injector [Concomitant]
     Indication: Product used for unknown indication
     Dosage: INJECT 0.75 MG INTO THE SKIN EVERY 7 DAYS ON SUNDAY?STRENGTH: 0.75 MG/0.5 ML
     Route: 058

REACTIONS (6)
  - Exposure to chemical pollution [Fatal]
  - Peritoneal mesothelioma malignant [Fatal]
  - Sarcomatoid mesothelioma [Fatal]
  - Epithelioid mesothelioma [Fatal]
  - Cardiac arrest [Fatal]
  - Septic shock [Fatal]

NARRATIVE: CASE EVENT DATE: 19780101
